FAERS Safety Report 6401512-1 (Version None)
Quarter: 2009Q4

REPORT INFORMATION
  Report Type: 
  Country: None (occurrence: None)
  Receive Date: 20091013
  Receipt Date: 20091013
  Transmission Date: 20100525
  Serious: Yes (Other)
  Sender: FDA-Public Use
  Company Number: None

PATIENT
  Age: 57 Year
  Sex: Female
  Weight: 58.9676 kg

DRUGS (1)
  1. BONIVA [Suspect]
     Indication: BONE DENSITY DECREASED
     Dosage: 1 MONTHLY PO   SINGLE DOSE ONLY
     Route: 048
     Dates: start: 20090818, end: 20090818

REACTIONS (4)
  - BONE PAIN [None]
  - FEELING ABNORMAL [None]
  - INFLUENZA [None]
  - MYALGIA [None]
